FAERS Safety Report 20219735 (Version 6)
Quarter: 2022Q2

REPORT INFORMATION
  Report Type: Report from Study
  Country: AU (occurrence: None)
  Receive Date: 20211222
  Receipt Date: 20220615
  Transmission Date: 20220721
  Serious: Yes (Hospitalization, Other)
  Sender: FDA-Public Use
  Company Number: AU-Eisai Medical Research-EC-2021-105277

PATIENT
  Age: 74 Year
  Sex: Female
  Weight: 80.9 kg

DRUGS (15)
  1. LENVIMA [Suspect]
     Active Substance: LENVATINIB
     Indication: Hepatocellular carcinoma
     Route: 048
     Dates: start: 20210903, end: 20210916
  2. LENVIMA [Suspect]
     Active Substance: LENVATINIB
     Route: 048
     Dates: start: 2021, end: 20211116
  3. AMLODIPINE VALSARTEN [Concomitant]
     Route: 048
     Dates: start: 20100101, end: 20211116
  4. OXYCODONE HYDROCHLORIDE [Concomitant]
     Active Substance: OXYCODONE HYDROCHLORIDE
     Route: 048
  5. METOCLOPRAMIDE [Concomitant]
     Active Substance: METOCLOPRAMIDE
     Route: 048
  6. METHYL SALICYLATE\PEPPERMINT OIL\SODIUM BICARBONATE\SODIUM CHLORIDE [Concomitant]
     Active Substance: METHYL SALICYLATE\PEPPERMINT OIL\SODIUM BICARBONATE\SODIUM CHLORIDE
  7. SM-33 [Concomitant]
  8. UREDERM [Concomitant]
  9. XALATAN [Concomitant]
     Active Substance: LATANOPROST
  10. MOMETASONE [Concomitant]
     Active Substance: MOMETASONE
     Dosage: 2 PUFFS
     Dates: end: 20211116
  11. HYDROCHLOROTHIAZIDE [Concomitant]
     Active Substance: HYDROCHLOROTHIAZIDE
     Dates: start: 20100101, end: 20211115
  12. APIXABAN [Concomitant]
     Active Substance: APIXABAN
     Dates: start: 20210101, end: 20211116
  13. AMOXICILLIN\CLARITHROMYCIN\ESOMEPRAZOLE [Concomitant]
     Active Substance: AMOXICILLIN\CLARITHROMYCIN\ESOMEPRAZOLE
     Route: 048
     Dates: start: 20210825, end: 20210901
  14. PROBIOTICS NOS [Concomitant]
     Active Substance: PROBIOTICS NOS
     Route: 048
     Dates: start: 20210827, end: 20211116
  15. URAL [Concomitant]
     Route: 048
     Dates: start: 20211027, end: 20211115

REACTIONS (5)
  - Acute kidney injury [Recovered/Resolved]
  - Hepatic encephalopathy [Unknown]
  - Hypothyroidism [Recovered/Resolved]
  - Dehydration [Recovered/Resolved]
  - Jaundice [Unknown]

NARRATIVE: CASE EVENT DATE: 20211027
